FAERS Safety Report 18278545 (Version 2)
Quarter: 2020Q3

REPORT INFORMATION
  Report Type: Spontaneous
  Country: TR (occurrence: TR)
  Receive Date: 20200917
  Receipt Date: 20200929
  Transmission Date: 20201103
  Serious: No
  Sender: FDA-Public Use
  Company Number: TR-PFIZER INC-2020353036

PATIENT
  Age: 24 Year
  Sex: Female

DRUGS (3)
  1. DOSTINEX [Suspect]
     Active Substance: CABERGOLINE
     Indication: HORMONE THERAPY
  2. CYCLO?PROGYNOVA [ESTRADIOL VALERATE;LEVONORGESTREL] [Concomitant]
     Indication: MENSTRUAL DISORDER
     Dosage: 1 DF, 1X/DAY
  3. DOSTINEX [Suspect]
     Active Substance: CABERGOLINE
     Indication: MENSTRUAL DISORDER
     Dosage: 2 DF ONCE IN 3 DAYS

REACTIONS (4)
  - Photopsia [Recovering/Resolving]
  - Off label use [Unknown]
  - Product use in unapproved indication [Unknown]
  - Headache [Recovering/Resolving]
